FAERS Safety Report 5778003-4 (Version None)
Quarter: 2008Q2

REPORT INFORMATION
  Report Type: 
  Country: None (occurrence: None)
  Receive Date: 20080617
  Receipt Date: 20080606
  Transmission Date: 20081010
  Serious: Yes (Death, Other)
  Sender: FDA-Public Use
  Company Number: 2007US002609

PATIENT
  Age: 28 Year

DRUGS (3)
  1. PROGRAF [Suspect]
     Indication: LIVER TRANSPLANT
     Dosage: 4 MG, BID, ORAL
     Route: 048
     Dates: start: 19931104
  2. PROGRAF [Suspect]
     Indication: LIVER TRANSPLANT
     Dosage: 4 MG, BID, ORAL
     Route: 048
     Dates: start: 20071001
  3. ACTIGALL [Concomitant]

REACTIONS (1)
  - LIVER TRANSPLANT REJECTION [None]
